FAERS Safety Report 5402830-6 (Version None)
Quarter: 2007Q3

REPORT INFORMATION
  Report Type: 
  Country: None (occurrence: None)
  Receive Date: 20070801
  Receipt Date: 20070727
  Transmission Date: 20080115
  Serious: Yes (Hospitalization, Other)
  Sender: FDA-Public Use
  Company Number: FR-BRISTOL-MYERS SQUIBB COMPANY-13861786

PATIENT
  Age: 61 Year
  Sex: Male
  Weight: 62 kg

DRUGS (4)
  1. REYATAZ [Suspect]
     Indication: HIV INFECTION
     Route: 048
     Dates: start: 20050415, end: 20070430
  2. VIDEX [Concomitant]
     Dates: start: 20050415
  3. EPIVIR [Concomitant]
     Dates: start: 20050415
  4. NORVIR [Concomitant]
     Dates: start: 20050415

REACTIONS (5)
  - GRANULOMA [None]
  - HYPERURICAEMIA [None]
  - NEPHROLITHIASIS [None]
  - RENAL FAILURE [None]
  - RENAL TUBULAR DISORDER [None]
